FAERS Safety Report 17808613 (Version 1)
Quarter: 2020Q2

REPORT INFORMATION
  Report Type: Report from Study
  Country: US (occurrence: US)
  Receive Date: 20200520
  Receipt Date: 20200520
  Transmission Date: 20200714
  Serious: Yes (Death, Other)
  Sender: FDA-Public Use
  Company Number: US-ROCHE-2353219

PATIENT
  Sex: Female
  Weight: 124.29 kg

DRUGS (1)
  1. ZELBORAF [Suspect]
     Active Substance: VEMURAFENIB
     Indication: HAIRY CELL LEUKAEMIA
     Dosage: TAKE 1 TABLET BY MOUTH TWICE A DAY
     Route: 048

REACTIONS (5)
  - Renal failure [Not Recovered/Not Resolved]
  - Intentional product use issue [Unknown]
  - Off label use [Unknown]
  - Death [Fatal]
  - Memory impairment [Unknown]
